FAERS Safety Report 6567457-1 (Version None)
Quarter: 2010Q1

REPORT INFORMATION
  Report Type: 
  Country: None (occurrence: None)
  Receive Date: 20100202
  Receipt Date: 20100201
  Transmission Date: 20100710
  Serious: Yes (Hospitalization)
  Sender: FDA-Public Use
  Company Number: DE-WYE-G05469310

PATIENT
  Sex: Female

DRUGS (2)
  1. IBUPROFEN [Suspect]
  2. POLYETHYLENE GLYCOL [Suspect]
     Indication: PREMEDICATION
     Dosage: 3 DOSES ON 26-MAR-2009, 1 DOSE ON 27-MAR-2009
     Route: 048
     Dates: start: 20090326, end: 20090327

REACTIONS (7)
  - ANAPHYLACTIC SHOCK [None]
  - DYSPNOEA [None]
  - EMERGENCY CARE [None]
  - GASTROINTESTINAL PAIN [None]
  - HYPERSENSITIVITY [None]
  - LOSS OF CONSCIOUSNESS [None]
  - RESPIRATORY DISTRESS [None]
